FAERS Safety Report 24397537 (Version 1)
Quarter: 2024Q4

REPORT INFORMATION
  Report Type: Spontaneous
  Country: US (occurrence: US)
  Receive Date: 20241004
  Receipt Date: 20241004
  Transmission Date: 20250115
  Serious: Yes (Hospitalization, Disabling)
  Sender: MYLAN
  Company Number: US-MYLANLABS-2024M1088185

PATIENT
  Age: 36 Year
  Sex: Female

DRUGS (5)
  1. HYDROCORTISONE [Suspect]
     Active Substance: HYDROCORTISONE
     Indication: Acute kidney injury
     Dosage: UNK
     Route: 042
  2. NOREPINEPHRINE [Suspect]
     Active Substance: NOREPINEPHRINE\NOREPINEPHRINE BITARTRATE
     Indication: Multiple organ dysfunction syndrome
     Dosage: UNK
     Route: 065
  3. FLUDROCORTISONE [Suspect]
     Active Substance: FLUDROCORTISONE
     Indication: Acute kidney injury
     Dosage: UNK
     Route: 042
  4. HYDROXYUREA [Suspect]
     Active Substance: HYDROXYUREA
     Indication: Multiple organ dysfunction syndrome
     Dosage: UNK
     Route: 065
  5. INSULIN ASPART [Concomitant]
     Active Substance: INSULIN ASPART
     Indication: Diabetic ketoacidosis
     Dosage: UNK
     Route: 042

REACTIONS (1)
  - Drug ineffective [Unknown]
